FAERS Safety Report 5070083-7 (Version None)
Quarter: 2006Q3

REPORT INFORMATION
  Report Type: 
  Country: None (occurrence: None)
  Receive Date: 20060803
  Receipt Date: 20060713
  Transmission Date: 20061208
  Serious: Yes (Other)
  Sender: FDA-Public Use
  Company Number: JP-BRISTOL-MYERS SQUIBB COMPANY-13450622

PATIENT
  Age: 25 Year
  Sex: Female

DRUGS (9)
  1. GATIFLOXACIN [Suspect]
     Indication: PNEUMONIA
     Route: 048
     Dates: start: 20060703, end: 20060704
  2. ASTOMIN [Concomitant]
     Route: 048
     Dates: start: 20060703, end: 20060707
  3. MUCOSOLVAN [Concomitant]
     Route: 048
     Dates: start: 20060703, end: 20060707
  4. CRAVIT [Concomitant]
     Route: 048
     Dates: start: 20060704, end: 20060712
  5. MYSLEE [Concomitant]
     Route: 048
     Dates: start: 20060706, end: 20060715
  6. PL [Concomitant]
     Route: 048
     Dates: start: 20060629
  7. SERRAPEPTASE [Concomitant]
     Route: 048
     Dates: start: 20060629
  8. CLARITHROMYCIN [Concomitant]
     Route: 048
     Dates: start: 20060629
  9. ROCEPHIN [Concomitant]
     Route: 048
     Dates: start: 20060701, end: 20060701

REACTIONS (1)
  - HYPOGLYCAEMIA [None]
